FAERS Safety Report 5499824-1 (Version None)
Quarter: 2007Q4

REPORT INFORMATION
  Report Type: 
  Country: None (occurrence: None)
  Receive Date: 20071026
  Receipt Date: 20071015
  Transmission Date: 20080405
  Serious: Yes (Hospitalization)
  Sender: FDA-Public Use
  Company Number: JP-PFIZER INC-2007082699

PATIENT
  Sex: Female

DRUGS (4)
  1. CELECOX [Suspect]
     Indication: BACK PAIN
     Dosage: DAILY DOSE:200MG
     Route: 048
     Dates: start: 20070728, end: 20070816
  2. ALENDRONATE SODIUM [Concomitant]
     Indication: OSTEOPOROSIS
     Route: 048
  3. KARY UNI [Concomitant]
     Indication: BACK PAIN
     Route: 048
  4. SELTOUCH [Concomitant]
     Indication: BACK PAIN

REACTIONS (2)
  - C-REACTIVE PROTEIN INCREASED [None]
  - TOXIC SKIN ERUPTION [None]
